FAERS Safety Report 21453728 (Version 2)
Quarter: 2023Q1

REPORT INFORMATION
  Report Type: Report from Study
  Country: US (occurrence: US)
  Receive Date: 20221013
  Receipt Date: 20230213
  Transmission Date: 20230418
  Serious: Yes (Other)
  Sender: FDA-Public Use
  Company Number: US-PFIZER INC-202200145280

PATIENT
  Sex: Female

DRUGS (3)
  1. LYRICA [Suspect]
     Active Substance: PREGABALIN
     Indication: Back pain
     Dosage: 150 MILLIGRAM, BID ( TOTAL 2 TIMES DAILY) BY MOUTH
     Route: 065
  2. LYRICA [Suspect]
     Active Substance: PREGABALIN
     Indication: Nerve injury
     Dosage: UNK
     Route: 065
     Dates: start: 2011
  3. LYRICA [Suspect]
     Active Substance: PREGABALIN
     Indication: Back pain

REACTIONS (4)
  - Drug dependence [Unknown]
  - Irritability [Unknown]
  - Feeling abnormal [Unknown]
  - Off label use [Unknown]
